FAERS Safety Report 6003337-8 (Version None)
Quarter: 2008Q4

REPORT INFORMATION
  Report Type: 
  Country: None (occurrence: None)
  Receive Date: 20081216
  Receipt Date: 20081118
  Transmission Date: 20090506
  Serious: No
  Sender: FDA-Public Use
  Company Number: US-BAYER-200838933NA

PATIENT
  Age: 33 Year
  Sex: Female
  Weight: 120 kg

DRUGS (6)
  1. MAGNEVIST [Suspect]
     Indication: NUCLEAR MAGNETIC RESONANCE IMAGING
     Dosage: TOTAL DAILY DOSE: 40 ML  UNIT DOSE: 50 ML
     Route: 042
     Dates: start: 20081118, end: 20081118
  2. BUSPAR [Concomitant]
     Dosage: TOTAL DAILY DOSE: 30 MG
  3. ATROVENT [Concomitant]
     Dosage: TOTAL DAILY DOSE: 1 PUFF
  4. SINGULAIR [Concomitant]
     Dosage: TOTAL DAILY DOSE: 10 MG
  5. SYMBICORT [Concomitant]
     Dosage: TOTAL DAILY DOSE: 4 PUFF
  6. PROAIR HFA [Concomitant]

REACTIONS (3)
  - PRURITUS [None]
  - THROAT IRRITATION [None]
  - URTICARIA [None]
